FAERS Safety Report 18522711 (Version 3)
Quarter: 2021Q1

REPORT INFORMATION
  Report Type: Spontaneous
  Country: JP (occurrence: JP)
  Receive Date: 20201119
  Receipt Date: 20210218
  Transmission Date: 20210419
  Serious: Yes (Hospitalization, Other)
  Sender: FDA-Public Use
  Company Number: JP-CELGENEUS-JPN-20201103584

PATIENT
  Age: 37 Year
  Sex: Female
  Weight: 78 kg

DRUGS (3)
  1. GOSHAJINKIGAN [Concomitant]
     Active Substance: HERBALS
     Indication: HYPOAESTHESIA
     Dosage: 7.5 GRAM
     Route: 048
     Dates: start: 20191002, end: 20200202
  2. LYRICA [Concomitant]
     Active Substance: PREGABALIN
     Indication: HYPOAESTHESIA
     Dosage: 300 MILLIGRAM
     Route: 048
     Dates: start: 20191113, end: 20191229
  3. ABRAXANE [Suspect]
     Active Substance: PACLITAXEL
     Indication: HORMONE REFRACTORY BREAST CANCER
     Dosage: 450 MG/3 WEEKS
     Route: 041
     Dates: start: 20190417

REACTIONS (3)
  - Patella fracture [Recovering/Resolving]
  - Neuropathy peripheral [Unknown]
  - Fall [Unknown]

NARRATIVE: CASE EVENT DATE: 20191206
